FAERS Safety Report 4716702-3 (Version None)
Quarter: 2005Q3

REPORT INFORMATION
  Report Type: 
  Country: None (occurrence: None)
  Receive Date: 20050714
  Receipt Date: 20050702
  Transmission Date: 20060218
  Serious: Yes (Other)
  Sender: FDA-Public Use
  Company Number: 2005016591

PATIENT
  Age: 71 Year
  Sex: Male

DRUGS (12)
  1. DETROL LA [Suspect]
     Indication: HYPERTONIC BLADDER
     Dosage: 4 MG (4 MG, 1 IN 1 D), ORAL
     Route: 048
     Dates: start: 20041213
  2. CARDIAC THERAPY (CARDIAC THERAPY) [Concomitant]
  3. ATENOLOL [Concomitant]
  4. DYAZIDE [Concomitant]
  5. TAMSULOSIN HCL [Concomitant]
  6. MORPHINE SULFATE (MORPHINE SULFATE) [Concomitant]
  7. XANAX [Concomitant]
  8. ASPIRIN (ACETYLDSALICYLIC ACID) [Concomitant]
  9. GLUCOTROL [Concomitant]
  10. DICYCLOMINE (DICYCLOVERINE) [Concomitant]
  11. AVAPRO [Concomitant]
  12. IBUPROFEN [Concomitant]

REACTIONS (2)
  - DRUG EFFECT DECREASED [None]
  - TRANSURETHRAL PROSTATECTOMY [None]
